FAERS Safety Report 19664936 (Version 3)
Quarter: 2024Q3

REPORT INFORMATION
  Report Type: Spontaneous
  Country: US (occurrence: US)
  Receive Date: 20210806
  Receipt Date: 20240802
  Transmission Date: 20241017
  Serious: Yes (Other)
  Sender: ACCORD
  Company Number: US-ACCORD-170513

PATIENT
  Age: 55 Year
  Sex: Female
  Weight: 81.65 kg

DRUGS (15)
  1. DOCETAXEL [Suspect]
     Active Substance: DOCETAXEL\DOCETAXEL ANHYDROUS
     Indication: Breast cancer
     Dosage: EVERY THREE WEEKS
     Dates: start: 20150709, end: 20150910
  2. ADRIAMYCIN [Suspect]
     Active Substance: DOXORUBICIN HYDROCHLORIDE
     Indication: Breast cancer
  3. NEOSAR [Suspect]
     Active Substance: CYCLOPHOSPHAMIDE
     Indication: Breast cancer
  4. TRASTUZUMAB [Suspect]
     Active Substance: TRASTUZUMAB
     Indication: Breast cancer
     Dosage: EVERY THREE WEEKS
     Dates: start: 20150709, end: 20150910
  5. PERTUZUMAB [Suspect]
     Active Substance: PERTUZUMAB
     Indication: Breast cancer
     Dosage: EVERY THREE WEEKS
     Dates: start: 20150709, end: 20150910
  6. DILTIAZEM [Concomitant]
     Active Substance: DILTIAZEM
     Dosage: CALCIUM CHANNEL BLOCKING
  7. LISINOPRIL [Concomitant]
     Active Substance: LISINOPRIL
     Dosage: CALCIUM CHANNEL BLOCKING
  8. TENORMIN [Concomitant]
     Active Substance: ATENOLOL
     Dates: start: 20000101
  9. ALDACTONE [Concomitant]
     Active Substance: SPIRONOLACTONE
     Dates: start: 20000101
  10. PRAVASTATIN [Concomitant]
     Active Substance: PRAVASTATIN
     Dates: start: 20000101
  11. XANAX [Concomitant]
     Active Substance: ALPRAZOLAM
     Dates: start: 20000101
  12. ZOLOFT [Concomitant]
     Active Substance: SERTRALINE HYDROCHLORIDE
     Dates: start: 20000101
  13. AMBIEN [Concomitant]
     Active Substance: ZOLPIDEM TARTRATE
     Dates: start: 20000101
  14. NEURONTIN [Concomitant]
     Active Substance: GABAPENTIN
     Dates: start: 2010
  15. ASPIRIN [Concomitant]
     Active Substance: ASPIRIN
     Dates: start: 20000101

REACTIONS (1)
  - Alopecia [Not Recovered/Not Resolved]

NARRATIVE: CASE EVENT DATE: 20150701
